FAERS Safety Report 12077756 (Version 4)
Quarter: 2016Q2

REPORT INFORMATION
  Report Type: Spontaneous
  Country: US (occurrence: US)
  Receive Date: 20160215
  Receipt Date: 20160509
  Transmission Date: 20160815
  Serious: Yes (Other)
  Sender: FDA-Public Use
  Company Number: PHEH2016US003296

PATIENT
  Age: 65 Year
  Sex: Female
  Weight: 59.2 kg

DRUGS (4)
  1. ZOMETA [Suspect]
     Active Substance: ZOLEDRONIC ACID
     Indication: METASTASES TO BONE
  2. ZOMETA [Suspect]
     Active Substance: ZOLEDRONIC ACID
     Indication: BREAST CANCER METASTATIC
     Dosage: 4 MG, EVERY 4 WEEKS
     Route: 042
     Dates: start: 2014
  3. FASLODEX [Suspect]
     Active Substance: FULVESTRANT
     Indication: BREAST CANCER METASTATIC
     Route: 065
  4. PALBOCICLIB [Suspect]
     Active Substance: PALBOCICLIB
     Indication: BREAST CANCER METASTATIC
     Dosage: 125 MG,  (CYCLE 2, DAY 17)
     Route: 065

REACTIONS (5)
  - Pharyngitis streptococcal [Recovered/Resolved]
  - Malignant neoplasm progression [Unknown]
  - Breast cancer metastatic [Unknown]
  - Hypoaesthesia oral [Recovered/Resolved]
  - Throat lesion [Recovered/Resolved]

NARRATIVE: CASE EVENT DATE: 20160102
